FAERS Safety Report 10041374 (Version 1)
Quarter: 2014Q1

REPORT INFORMATION
  Report Type: Spontaneous
  Country: FR (occurrence: FR)
  Receive Date: 20140327
  Receipt Date: 20140327
  Transmission Date: 20141002
  Serious: Yes (Hospitalization)
  Sender: FDA-Public Use
  Company Number: FR-TEVA-470839ISR

PATIENT
  Age: 13 Year
  Sex: Female

DRUGS (2)
  1. METHOTREXATE TEVA [Suspect]
     Indication: OSTEOSARCOMA
     Dosage: SLOW IV DRIP, 19G/M2
     Route: 041
     Dates: start: 20131015, end: 20131015
  2. METHOTREXATE TEVA [Suspect]
     Dosage: SLOW IV DRIP, 19G/M2
     Route: 041
     Dates: start: 20131227, end: 20131227

REACTIONS (3)
  - Hepatocellular injury [Unknown]
  - Gamma-glutamyltransferase increased [Recovered/Resolved]
  - Proteinuria [Recovered/Resolved]
